FAERS Safety Report 4788873-4 (Version None)
Quarter: 2005Q4

REPORT INFORMATION
  Report Type: 
  Country: None (occurrence: None)
  Receive Date: 20051004
  Receipt Date: 20050927
  Transmission Date: 20060501
  Serious: Yes (Hospitalization, Other)
  Sender: FDA-Public Use
  Company Number: 2005133811

PATIENT
  Age: 28 Year
  Sex: Female

DRUGS (5)
  1. PREDNISONE [Suspect]
     Indication: SYSTEMIC LUPUS ERYTHEMATOSUS
     Dosage: 12.5 MG
  2. OXCARBAZEPINE (OXCARBAZEPINE) [Suspect]
     Indication: COMPLEX PARTIAL SEIZURES
     Dosage: 900 MG (300 MG, 3 IN 1 D)
  3. TOPIRAMATE [Suspect]
     Indication: COMPLEX PARTIAL SEIZURES
     Dosage: 300 MG (150 MG, 2 IN 1 D)
  4. PHENOBARBITAL TAB [Suspect]
     Indication: COMPLEX PARTIAL SEIZURES
     Dosage: 200 MG (100 MG, 2 IN 1 D)
  5. LEVETIRACETAM [Suspect]
     Indication: COMPLEX PARTIAL SEIZURES
     Dosage: 2000 MG (1000 MG, 2 IN 1 D)

REACTIONS (10)
  - ANGLE CLOSURE GLAUCOMA [None]
  - COMPLEX PARTIAL SEIZURES [None]
  - CONFUSIONAL STATE [None]
  - IRRITABILITY [None]
  - MYOPIA [None]
  - OCULAR HYPERAEMIA [None]
  - PLATELET COUNT DECREASED [None]
  - SOMNOLENCE [None]
  - VISION BLURRED [None]
  - WHITE BLOOD CELL COUNT DECREASED [None]
